FAERS Safety Report 7964993-8 (Version None)
Quarter: 2011Q4

REPORT INFORMATION
  Report Type: 
  Country: None (occurrence: None)
  Receive Date: 20111208
  Receipt Date: 20111028
  Transmission Date: 20120403
  Serious: No
  Sender: FDA-Public Use
  Company Number: US-BAYER-2011-108026

PATIENT

DRUGS (1)
  1. CIPROFLOXACIN [Suspect]

REACTIONS (3)
  - TENDONITIS [None]
  - ARTHRALGIA [None]
  - MOTOR DYSFUNCTION [None]
